FAERS Safety Report 5207739-9 (Version None)
Quarter: 2006Q4

REPORT INFORMATION
  Report Type: 
  Country: None (occurrence: None)
  Receive Date: 20061030
  Receipt Date: 20060905
  Transmission Date: 20070319
  Serious: Yes (Hospitalization)
  Sender: FDA-Public Use
  Company Number: 2006CT000720

PATIENT
  Age: 64 Year
  Sex: Female
  Weight: 51.2565 kg

DRUGS (11)
  1. VENTAVIS [Suspect]
     Indication: PULMONARY HYPERTENSION
     Dosage: 5 UG; 6X/D; INH
     Route: 055
     Dates: start: 20060609, end: 20060831
  2. ISOSORBIDE [Concomitant]
  3. NITROGLYCERIN [Concomitant]
  4. TRANSDERMAL SYSTEM ZOLOFT [Concomitant]
  5. ASPIRIN [Concomitant]
  6. NEXIUM [Concomitant]
  7. SINGULAIR [Concomitant]
  8. ALBUTEROL [Concomitant]
  9. FLOVENT [Concomitant]
  10. PREDNISONE [Concomitant]
  11. TRACLEER [Concomitant]

REACTIONS (5)
  - CARDIAC FAILURE CONGESTIVE [None]
  - DIZZINESS [None]
  - LOSS OF CONSCIOUSNESS [None]
  - PNEUMONIA BACTERIAL [None]
  - SPUTUM ABNORMAL [None]
